FAERS Safety Report 9198468 (Version 1)
Quarter: 2013Q1

REPORT INFORMATION
  Report Type: Spontaneous
  Country: DE (occurrence: DE)
  Receive Date: 20130329
  Receipt Date: 20130329
  Transmission Date: 20140127
  Serious: Yes (Other)
  Sender: FDA-Public Use
  Company Number: DE-AMGEN-DEUSP2013021910

PATIENT
  Age: 34 Year
  Sex: Male
  Weight: 74.6 kg

DRUGS (4)
  1. ENBREL [Suspect]
     Indication: PSORIASIS
     Dosage: 25 MG, 2X/WEEK
     Route: 058
     Dates: start: 201302
  2. ENBREL [Suspect]
     Dosage: UNK
  3. METEX                              /00113802/ [Concomitant]
     Indication: PSORIASIS
     Dosage: 20 MG, 1X WEEKLY
     Route: 058
     Dates: start: 201303
  4. METEX                              /00113802/ [Concomitant]
     Indication: SPONDYLITIS
     Dosage: UNK
     Route: 058

REACTIONS (1)
  - Laryngitis [Recovered/Resolved]
